FAERS Safety Report 19065098 (Version 1)
Quarter: 2021Q1

REPORT INFORMATION
  Report Type: Spontaneous
  Country: US (occurrence: US)
  Receive Date: 20210326
  Receipt Date: 20210326
  Transmission Date: 20210420
  Serious: Yes (Hospitalization, Other)
  Sender: FDA-Public Use
  Company Number: US-009507513-2103USA006578

PATIENT
  Sex: Female

DRUGS (2)
  1. KEYTRUDA [Suspect]
     Active Substance: PEMBROLIZUMAB
     Dosage: UNK
  2. CX?024414. [Suspect]
     Active Substance: CX-024414
     Indication: PROPHYLAXIS

REACTIONS (2)
  - Endotracheal intubation [Unknown]
  - Seizure [Unknown]
